FAERS Safety Report 23700467 (Version 1)
Quarter: 2024Q2

REPORT INFORMATION
  Report Type: Spontaneous
  Country: CN (occurrence: CN)
  Receive Date: 20240403
  Receipt Date: 20240403
  Transmission Date: 20240715
  Serious: Yes (Other)
  Sender: FDA-Public Use
  Company Number: CN-SUN PHARMACEUTICAL INDUSTRIES LTD-2024R1-439194

PATIENT
  Age: 4 Decade
  Sex: Female

DRUGS (9)
  1. ASCORBIC ACID [Suspect]
     Active Substance: ASCORBIC ACID
     Indication: Hypersensitivity
     Dosage: 2 GRAM, DAILY
     Route: 042
  2. CEFUROXIME [Suspect]
     Active Substance: CEFUROXIME
     Indication: Infection
     Dosage: 1.5 GRAM, BID
     Route: 042
  3. HYDROXYCHLOROQUINE [Suspect]
     Active Substance: HYDROXYCHLOROQUINE
     Indication: Sjogren^s syndrome
     Dosage: 200 MILLIGRAM
     Route: 048
  4. IMIPENEM AND CILASTATIN [Suspect]
     Active Substance: CILASTATIN SODIUM\IMIPENEM
     Indication: Antibiotic therapy
     Dosage: 500 MILLIGRAM
     Route: 042
  5. PREDNISONE [Suspect]
     Active Substance: PREDNISONE
     Indication: Hypersensitivity
     Dosage: 30 MILLIGRAM, DAILY
     Route: 048
  6. METHYLPREDNISOLONE [Suspect]
     Active Substance: METHYLPREDNISOLONE
     Indication: Sjogren^s syndrome
     Dosage: 20 MILLIGRAM, EVERY 12 H
     Route: 042
  7. CALCIUM GLUCONATE [Suspect]
     Active Substance: CALCIUM GLUCONATE
     Indication: Hypersensitivity
     Dosage: 2 GRAM
     Route: 065
  8. CALAMINE [Suspect]
     Active Substance: CALAMINE\FERRIC OXIDE RED\ZINC OXIDE
     Indication: Sjogren^s syndrome
     Dosage: UNK, BID
     Route: 065
  9. DEXAMETHASONE [Suspect]
     Active Substance: DEXAMETHASONE
     Indication: Maternal therapy to enhance foetal lung maturity
     Dosage: 6 MILLIGRAM, EVERY 12 H
     Route: 030

REACTIONS (4)
  - Condition aggravated [Unknown]
  - Premature delivery [Unknown]
  - Impetigo herpetiformis [Unknown]
  - Exposure during pregnancy [Unknown]
